FAERS Safety Report 9314208 (Version 1)
Quarter: 2013Q2

REPORT INFORMATION
  Report Type: Spontaneous
  Country: US (occurrence: None)
  Receive Date: 20130524
  Receipt Date: 20130524
  Transmission Date: 20140414
  Serious: Yes (Disabling)
  Sender: FDA-Public Use
  Company Number: None

PATIENT
  Age: 59 Year
  Sex: Female
  Weight: 58.97 kg

DRUGS (1)
  1. ZYCLARA [Suspect]
     Indication: ACTINIC KERATOSIS
     Dates: start: 20130310, end: 20130315

REACTIONS (2)
  - Skin plaque [None]
  - Scar [None]
